FAERS Safety Report 12286179 (Version 2)
Quarter: 2016Q3

REPORT INFORMATION
  Report Type: Spontaneous
  Country: US (occurrence: US)
  Receive Date: 20160420
  Receipt Date: 20160808
  Transmission Date: 20161109
  Serious: Yes (Death, Hospitalization)
  Sender: FDA-Public Use
  Company Number: US-CELGENEUS-USA-2016042990

PATIENT
  Sex: Female

DRUGS (2)
  1. OTEZLA [Suspect]
     Active Substance: APREMILAST
     Indication: PSORIATIC ARTHROPATHY
     Dosage: 60 MILLIGRAM
     Route: 048
     Dates: start: 201512
  2. OTEZLA [Suspect]
     Active Substance: APREMILAST
     Indication: PSORIASIS

REACTIONS (1)
  - Malaise [Fatal]
